FAERS Safety Report 7896130-2 (Version None)
Quarter: 2011Q4

REPORT INFORMATION
  Report Type: 
  Country: None (occurrence: None)
  Receive Date: 20111106
  Receipt Date: 20110906
  Transmission Date: 20120403
  Serious: No
  Sender: FDA-Public Use
  Company Number: US-AMGEN-USASP2011045517

PATIENT
  Sex: Male

DRUGS (1)
  1. ENBREL [Suspect]
     Dosage: UNK
     Dates: start: 20110110, end: 20110901

REACTIONS (2)
  - MYOFASCIAL PAIN SYNDROME [None]
  - OROPHARYNGEAL PAIN [None]
